FAERS Safety Report 7862135-0 (Version None)
Quarter: 2011Q4

REPORT INFORMATION
  Report Type: 
  Country: None (occurrence: None)
  Receive Date: 20111027
  Receipt Date: 20101102
  Transmission Date: 20120403
  Serious: No
  Sender: FDA-Public Use
  Company Number: US-AMGEN-USASP2010002905

PATIENT
  Age: 46 Year
  Sex: Female

DRUGS (3)
  1. ENBREL [Suspect]
     Indication: RHEUMATOID ARTHRITIS
     Dates: start: 20101028
  2. ARAVA [Concomitant]
     Dosage: 1 MG, QD
     Dates: start: 20100601
  3. PLAQUENIL [Concomitant]
     Dosage: 1 MG, QD
     Dates: start: 20100701

REACTIONS (1)
  - NAUSEA [None]
